FAERS Safety Report 4399815-8 (Version None)
Quarter: 2004Q3

REPORT INFORMATION
  Report Type: 
  Country: None (occurrence: None)
  Receive Date: 20040714
  Receipt Date: 20040702
  Transmission Date: 20050211
  Serious: Yes (Life-Threatening, Hospitalization)
  Sender: FDA-Public Use
  Company Number: 2004044710

PATIENT
  Age: 61 Year
  Sex: Male
  Weight: 70 kg

DRUGS (18)
  1. DIFLUCAN [Suspect]
     Indication: CANDIDIASIS
     Dosage: 200 MG (UNK), INTRAVENOUS
     Route: 042
     Dates: start: 20040415, end: 20040416
  2. AMIODARONE HCL [Suspect]
     Indication: VENTRICULAR FIBRILLATION
     Dosage: UNK, INTRAVENOUS
     Route: 042
     Dates: start: 20040412
  3. CIPROFLOXACIN [Suspect]
     Indication: PNEUMONIA
     Dosage: 500 MG (UNK), ORAL
     Route: 048
     Dates: start: 20040406, end: 20040416
  4. METOPROLOL SUCCINATE [Concomitant]
  5. DIGITOXIN TAB [Concomitant]
  6. TORSEMIDE [Concomitant]
  7. SPIRONOLACTONE [Concomitant]
  8. RAMIPRIL [Concomitant]
  9. OMEPRAZOLE [Concomitant]
  10. ACETYLSALICYLIC ACID SRT [Concomitant]
  11. CEFOTAXINE (CEFOTAXIME) [Concomitant]
  12. PREDNISOLONE [Concomitant]
  13. DIMETICONE (DIMETICONE) [Concomitant]
  14. THIAMINE HCL [Concomitant]
  15. BISACODYL (BISACODYL) [Concomitant]
  16. LACTULOSE [Concomitant]
  17. METOCLOPRAMIDE HYDROCHLORIDE [Concomitant]
  18. UNACID (AMPICILLIN SODIUM, SULBACTAM SODIUM) [Concomitant]

REACTIONS (8)
  - ATRIAL FIBRILLATION [None]
  - CANDIDIASIS [None]
  - DRUG INTERACTION [None]
  - ELECTROCARDIOGRAM QT PROLONGED [None]
  - ILEUS PARALYTIC [None]
  - LOW CARDIAC OUTPUT SYNDROME [None]
  - RENAL FAILURE ACUTE [None]
  - VENTRICULAR FIBRILLATION [None]
